FAERS Safety Report 6338606-5 (Version None)
Quarter: 2009Q3

REPORT INFORMATION
  Report Type: 
  Country: None (occurrence: None)
  Receive Date: 20090903
  Receipt Date: 20090824
  Transmission Date: 20100115
  Serious: Yes (Other)
  Sender: FDA-Public Use
  Company Number: DE-RANBAXY-2009RR-26729

PATIENT
  Age: 62 Year
  Sex: Male

DRUGS (2)
  1. METFORMIN HCL [Suspect]
     Indication: TYPE 2 DIABETES MELLITUS
  2. ACARBOSE [Suspect]
     Indication: TYPE 2 DIABETES MELLITUS

REACTIONS (4)
  - LACTIC ACIDOSIS [None]
  - OLIGURIA [None]
  - PYREXIA [None]
  - SOMNOLENCE [None]
